FAERS Safety Report 7118523-3 (Version None)
Quarter: 2010Q4

REPORT INFORMATION
  Report Type: 
  Country: None (occurrence: None)
  Receive Date: 20101123
  Receipt Date: 20101112
  Transmission Date: 20110411
  Serious: No
  Sender: FDA-Public Use
  Company Number: US-JNJFOC-20101105443

PATIENT
  Sex: Female
  Weight: 72.58 kg

DRUGS (23)
  1. SANDOZ FENTANYL TRANSDERMAL SYSTEM [Suspect]
     Indication: ARTHRALGIA
     Route: 062
  2. SANDOZ FENTANYL TRANSDERMAL SYSTEM [Suspect]
     Indication: ARTHRITIS
     Route: 062
  3. KLONOPIN [Concomitant]
     Dosage: 1 AT NIGHT OR AS NEEDED
     Route: 048
  4. LORTAB [Concomitant]
     Indication: PAIN
     Route: 048
  5. SINGULAIR [Concomitant]
     Indication: ASTHMA
     Route: 048
  6. ASPIRIN [Concomitant]
     Indication: BLOOD PRESSURE
     Route: 048
  7. ASTELIN [Concomitant]
     Indication: MULTIPLE ALLERGIES
     Route: 045
  8. NORVASC [Concomitant]
     Indication: MUSCLE SPASTICITY
     Route: 048
  9. CARISOPRODOL [Concomitant]
     Indication: MUSCLE SPASMS
     Route: 048
  10. LANSOPRAZOLE [Concomitant]
     Indication: GASTROOESOPHAGEAL REFLUX DISEASE
     Route: 048
  11. FLUTICASONE PROPIONATE [Concomitant]
     Indication: MULTIPLE ALLERGIES
     Route: 045
  12. ALLEGRA D 24 HOUR [Concomitant]
     Indication: MULTIPLE ALLERGIES
     Route: 048
  13. BYSTOLIC [Concomitant]
     Indication: BLOOD PRESSURE
     Route: 048
  14. LIPITOR [Concomitant]
     Indication: BLOOD CHOLESTEROL
     Route: 048
  15. CELEBREX [Concomitant]
     Indication: ARTHRITIS
     Route: 048
  16. CARBIDOPA AND LEVODOPA [Concomitant]
     Indication: MUSCLE SPASMS
     Dosage: TWICE AT NIGHT OR AS NEEDED
     Route: 048
  17. RANITIDINE [Concomitant]
     Indication: MUSCLE SPASMS
     Route: 048
  18. BUPROPION [Concomitant]
     Indication: DEPRESSION
     Route: 048
  19. GABAPENTIN [Concomitant]
     Indication: MUSCLE SPASMS
     Route: 048
  20. AMLODIPINE BESYLATE [Concomitant]
     Indication: BLOOD PRESSURE
     Route: 048
  21. LORAZEPAM [Concomitant]
     Indication: MUSCLE SPASMS
     Route: 048
  22. ADVAIR DISKUS 100/50 [Concomitant]
     Indication: ASTHMA
     Dosage: 1 PUFF TWICE A DAY
     Route: 055
  23. PROAIR HFA [Concomitant]
     Indication: ASTHMA
     Dosage: 1 TO 2 PUFFS
     Route: 055

REACTIONS (4)
  - INSOMNIA [None]
  - PAIN [None]
  - PRODUCT ADHESION ISSUE [None]
  - WRONG TECHNIQUE IN DRUG USAGE PROCESS [None]
